FAERS Safety Report 18104135 (Version 1)
Quarter: 2020Q3

REPORT INFORMATION
  Report Type: Spontaneous
  Country: US (occurrence: US)
  Receive Date: 20200801
  Receipt Date: 20200801
  Transmission Date: 20201103
  Serious: Yes (Other)
  Sender: FDA-Public Use
  Company Number: None

PATIENT
  Age: 51 Year
  Sex: Female
  Weight: 55.35 kg

DRUGS (2)
  1. CIPROFLOXACIN HCL [Suspect]
     Active Substance: CIPROFLOXACIN HYDROCHLORIDE
     Indication: DIVERTICULITIS
     Dosage: ?          QUANTITY:1 TABLET(S);?
     Route: 048
     Dates: start: 20200722, end: 20200724
  2. METRONIDAZOLE. [Suspect]
     Active Substance: METRONIDAZOLE

REACTIONS (2)
  - Neuropathy peripheral [None]
  - Paraesthesia [None]

NARRATIVE: CASE EVENT DATE: 20200724
